FAERS Safety Report 13264322 (Version 1)
Quarter: 2017Q1

REPORT INFORMATION
  Report Type: Spontaneous
  Country: US (occurrence: US)
  Receive Date: 20170222
  Receipt Date: 20170222
  Transmission Date: 20170428
  Serious: No
  Sender: FDA-Public Use
  Company Number: None

PATIENT
  Age: 81 Year
  Sex: Female

DRUGS (1)
  1. REPATHA [Suspect]
     Active Substance: EVOLOCUMAB
     Indication: HYPERCHOLESTEROLAEMIA
     Dosage: 140MG ONCE A MONTH SQ
     Route: 058
     Dates: start: 20170103

REACTIONS (5)
  - Pharyngeal oedema [None]
  - Dyspepsia [None]
  - Constipation [None]
  - Fatigue [None]
  - Throat irritation [None]

NARRATIVE: CASE EVENT DATE: 20170104
